FAERS Safety Report 7159914-4 (Version None)
Quarter: 2010Q4

REPORT INFORMATION
  Report Type: 
  Country: None (occurrence: None)
  Receive Date: 20101214
  Receipt Date: 20101202
  Transmission Date: 20110411
  Serious: Yes (Other)
  Sender: FDA-Public Use
  Company Number: PHHY2009JP48974

PATIENT
  Sex: Male
  Weight: 74 kg

DRUGS (3)
  1. GLEEVEC [Suspect]
     Indication: CHRONIC MYELOID LEUKAEMIA
     Dosage: 400 MG, UNK
     Route: 048
     Dates: end: 20091001
  2. GLEEVEC [Suspect]
     Dosage: UNK
     Route: 048
     Dates: end: 20091101
  3. ALCOHOL [Concomitant]

REACTIONS (17)
  - ABDOMINAL ADHESIONS [None]
  - ABDOMINAL DISCOMFORT [None]
  - ABDOMINAL PAIN [None]
  - ASTHENIA [None]
  - COLOSTOMY [None]
  - DEPRESSED MOOD [None]
  - FEELING ABNORMAL [None]
  - FREQUENT BOWEL MOVEMENTS [None]
  - GAMMA-GLUTAMYLTRANSFERASE INCREASED [None]
  - HYPERHIDROSIS [None]
  - INCREASED APPETITE [None]
  - LOCALISED OEDEMA [None]
  - MALAISE [None]
  - NAUSEA [None]
  - PERIPHERAL COLDNESS [None]
  - STRESS [None]
  - WEIGHT INCREASED [None]
